FAERS Safety Report 5421454-8 (Version None)
Quarter: 2007Q3

REPORT INFORMATION
  Report Type: 
  Country: None (occurrence: None)
  Receive Date: 20070821
  Receipt Date: 20070813
  Transmission Date: 20080115
  Serious: Yes (Other)
  Sender: FDA-Public Use
  Company Number: US-BOEHRINGER INGELHEIM PHARMACEUTICALS, INC.-2007-BP-19124VE

PATIENT
  Sex: Male

DRUGS (1)
  1. ACETYLCYSTEINE SOLUTION USP, 20% (STERILE) [Suspect]
     Indication: CYSTIC FIBROSIS
     Route: 055
     Dates: start: 20070101

REACTIONS (1)
  - MEDICATION ERROR [None]
